FAERS Safety Report 8788049 (Version 2)
Quarter: 2015Q2

REPORT INFORMATION
  Report Type: Report from Study
  Country: US (occurrence: US)
  Receive Date: 20120914
  Receipt Date: 20150619
  Transmission Date: 20150821
  Serious: Yes (Death)
  Sender: FDA-Public Use
  Company Number: US-ROCHE-1128302

PATIENT
  Sex: Female

DRUGS (3)
  1. AVASTIN [Suspect]
     Active Substance: BEVACIZUMAB
     Indication: GASTRIC CANCER
     Route: 042
  2. TAXOTERE [Concomitant]
     Active Substance: DOCETAXEL
  3. ATIVAN [Concomitant]
     Active Substance: LORAZEPAM
     Route: 042

REACTIONS (2)
  - Off label use [Unknown]
  - Death [Fatal]
